FAERS Safety Report 9285576 (Version 1)
Quarter: 2013Q2

REPORT INFORMATION
  Report Type: Spontaneous
  Country: IT (occurrence: None)
  Receive Date: 20130507
  Receipt Date: 20130507
  Transmission Date: 20140414
  Serious: Yes (Other)
  Sender: FDA-Public Use
  Company Number: 1693368

PATIENT
  Age: 38 Year
  Sex: Male

DRUGS (5)
  1. CARBOPLATIN [Suspect]
     Indication: OVARIAN CANCER
     Dosage: 600 MG, CYCLICAL, INTRAVENOUS
     Route: 042
     Dates: start: 20121122, end: 20130221
  2. SOLDESAM [Concomitant]
  3. TRIMETON [Concomitant]
  4. ONDANSETRON KABI [Concomitant]
  5. RANIDIL [Concomitant]

REACTIONS (2)
  - Dyspnoea [None]
  - Erythema [None]
